FAERS Safety Report 7156424-5 (Version None)
Quarter: 2010Q4

REPORT INFORMATION
  Report Type: 
  Country: None (occurrence: None)
  Receive Date: 20101214
  Receipt Date: 20101206
  Transmission Date: 20110411
  Serious: Yes (Death, Other)
  Sender: FDA-Public Use
  Company Number: JP-ROCHE-747251

PATIENT

DRUGS (9)
  1. MYCOPHENOLATE MOFETIL [Suspect]
     Dosage: B/W 12 AND 15 NG/ML FOR THE 1ST POST-LDLT MONTH + 8 TO 10 NG/ML FOR NEXT FEW MONTHS
     Route: 065
  2. RITUXIMAB [Suspect]
     Route: 065
  3. IMMUNE GLOBULIN INTRAVENOUS (HUMAN) [Suspect]
     Route: 042
  4. TACROLIMUS [Suspect]
     Route: 065
  5. CYCLOSPORINE [Suspect]
     Dosage: RANGES FROM 200 TO 250 NG/ML FOR THE 1ST POST-LDLT MONTH AND 100 TO 150 NG/ML NEXT FEW MONTHS
     Route: 065
  6. METHYLPREDNISOLONE [Suspect]
     Dosage: 1G GIVEN AFTER REPERFUSION AND TAPERED FROM 200 MG TO 40 MG OVER 10 DAYS,
     Route: 065
  7. PREDNISOLONE [Suspect]
     Dosage: TAPERED OFF IN 6 MONTHS AFTER LDLT
     Route: 048
  8. PROSTAGLANDIN E1 [Concomitant]
  9. NAFAMOSTAT MESILATE [Concomitant]

REACTIONS (5)
  - ASPERGILLOSIS [None]
  - CYTOMEGALOVIRUS INFECTION [None]
  - PORTAL VEIN THROMBOSIS [None]
  - SEPSIS [None]
  - TRANSPLANT REJECTION [None]
